FAERS Safety Report 4367360-1 (Version None)
Quarter: 2004Q2

REPORT INFORMATION
  Report Type: 
  Country: None (occurrence: None)
  Receive Date: 20040525
  Receipt Date: 20030521
  Transmission Date: 20050107
  Serious: Yes (Disabling)
  Sender: FDA-Public Use
  Company Number: 2003-105126-NL

PATIENT
  Age: 45 Year
  Sex: Female
  Weight: 62.7 kg

DRUGS (3)
  1. MIRCETTE [Suspect]
     Indication: MENOPAUSAL SYMPTOMS
     Dosage: DF QD ORAL
     Route: 048
     Dates: start: 20020401, end: 20030501
  2. IMITREX [Concomitant]
  3. MULTI-VITAMIN [Concomitant]

REACTIONS (2)
  - RETINAL VEIN THROMBOSIS [None]
  - VISUAL ACUITY REDUCED [None]
